FAERS Safety Report 23824307 (Version 5)
Quarter: 2024Q3

REPORT INFORMATION
  Report Type: Report from Study
  Country: US (occurrence: US)
  Receive Date: 20240507
  Receipt Date: 20240723
  Transmission Date: 20241017
  Serious: Yes (Other)
  Sender: BOEHRINGER INGELHEIM
  Company Number: US-BoehringerIngelheim-2023-BI-245802

PATIENT
  Age: 74 Year
  Sex: Male

DRUGS (3)
  1. OFEV [Suspect]
     Active Substance: NINTEDANIB
     Indication: Idiopathic pulmonary fibrosis
     Dosage: 208542A,208573, 302414
     Route: 048
     Dates: start: 20201016
  2. COVID-19 VACCINE NOS [Suspect]
     Active Substance: COVID-19 VACCINE
     Indication: Product used for unknown indication
  3. AMLODIPINE [Concomitant]
     Active Substance: AMLODIPINE BESYLATE
     Indication: Product used for unknown indication

REACTIONS (21)
  - Pancreatitis chronic [Unknown]
  - Pneumomediastinum [Unknown]
  - Herpes zoster [Unknown]
  - Type 2 diabetes mellitus [Unknown]
  - Fungal infection [Unknown]
  - Diarrhoea [Recovered/Resolved]
  - Rhinorrhoea [Unknown]
  - Seasonal allergy [Not Recovered/Not Resolved]
  - Sciatica [Unknown]
  - Cyst [Unknown]
  - Pain in extremity [Unknown]
  - Subcutaneous emphysema [Unknown]
  - Pain [Unknown]
  - Fatigue [Unknown]
  - Arthralgia [Unknown]
  - Hypersensitivity [Not Recovered/Not Resolved]
  - Cough [Unknown]
  - Diarrhoea [Recovered/Resolved]
  - Condition aggravated [Unknown]
  - Intervertebral disc protrusion [Unknown]
  - Hyperglycaemia [Unknown]

NARRATIVE: CASE EVENT DATE: 20240328
